FAERS Safety Report 17426575 (Version 1)
Quarter: 2020Q1

REPORT INFORMATION
  Report Type: Spontaneous
  Country: ES (occurrence: ES)
  Receive Date: 20200218
  Receipt Date: 20200218
  Transmission Date: 20200409
  Serious: Yes (Other)
  Sender: FDA-Public Use
  Company Number: ES-ALKEM LABORATORIES LIMITED-ES-ALKEM-2019-09474

PATIENT
  Age: 84 Year
  Sex: Female

DRUGS (9)
  1. LINEZOLID. [Suspect]
     Active Substance: LINEZOLID
     Indication: ENTEROBACTER INFECTION
  2. CIPROFLOXACIN. [Concomitant]
     Active Substance: CIPROFLOXACIN
     Indication: DEVICE RELATED INFECTION
  3. RIFAMPICIN [Concomitant]
     Active Substance: RIFAMPIN
     Indication: DEVICE RELATED INFECTION
     Dosage: 600 MILLIGRAM
     Route: 048
     Dates: start: 2018
  4. RIFAMPICIN [Concomitant]
     Active Substance: RIFAMPIN
     Indication: ENTEROBACTER INFECTION
     Dosage: 300 MILLIGRAM, QD
     Route: 048
     Dates: start: 201807, end: 2018
  5. LINEZOLID. [Suspect]
     Active Substance: LINEZOLID
     Indication: DEVICE RELATED INFECTION
  6. CIPROFLOXACIN. [Concomitant]
     Active Substance: CIPROFLOXACIN
     Indication: ENTEROBACTER INFECTION
     Dosage: 500 MILLIGRAM, BID
     Route: 048
     Dates: start: 201807
  7. LINEZOLID. [Suspect]
     Active Substance: LINEZOLID
     Indication: STAPHYLOCOCCAL INFECTION
     Dosage: 600 MILLIGRAM, BID
     Route: 048
     Dates: start: 2018, end: 2018
  8. CIPROFLOXACIN. [Concomitant]
     Active Substance: CIPROFLOXACIN
     Indication: STAPHYLOCOCCAL INFECTION
  9. RIFAMPICIN [Concomitant]
     Active Substance: RIFAMPIN
     Indication: STAPHYLOCOCCAL INFECTION
     Dosage: 600 MILLIGRAM, QD
     Route: 048
     Dates: start: 201807, end: 2018

REACTIONS (3)
  - Haematocrit abnormal [Recovering/Resolving]
  - Platelet disorder [Recovering/Resolving]
  - Haemoglobin abnormal [Recovering/Resolving]

NARRATIVE: CASE EVENT DATE: 2018
